FAERS Safety Report 4677658-5 (Version None)
Quarter: 2005Q2

REPORT INFORMATION
  Report Type: 
  Country: None (occurrence: None)
  Receive Date: 20050531
  Receipt Date: 20050318
  Transmission Date: 20051028
  Serious: Yes (Other)
  Sender: FDA-Public Use
  Company Number: US-BRISTOL-MYERS SQUIBB COMPANY-12902219

PATIENT
  Age: 28 Year
  Sex: Female
  Weight: 79 kg

DRUGS (5)
  1. KENALOG-40 [Suspect]
     Indication: SINUSITIS
     Route: 030
     Dates: start: 20050308, end: 20050308
  2. KENALOG-40 [Suspect]
     Indication: OTITIS MEDIA
     Route: 030
     Dates: start: 20050308, end: 20050308
  3. AVELOX [Suspect]
     Indication: SINUSITIS
     Route: 048
     Dates: start: 20050309, end: 20050309
  4. ROCEPHIN [Suspect]
     Indication: SINUSITIS
     Route: 030
     Dates: start: 20050308, end: 20050308
  5. ROCEPHIN [Suspect]
     Indication: OTITIS MEDIA
     Route: 030
     Dates: start: 20050308, end: 20050308

REACTIONS (6)
  - DYSPNOEA [None]
  - PARAESTHESIA [None]
  - PARAESTHESIA ORAL [None]
  - PRURITUS [None]
  - THROAT IRRITATION [None]
  - THROAT TIGHTNESS [None]
